FAERS Safety Report 10189666 (Version 1)
Quarter: 2014Q2

REPORT INFORMATION
  Report Type: Spontaneous
  Country: US (occurrence: US)
  Receive Date: 20140522
  Receipt Date: 20140522
  Transmission Date: 20141212
  Serious: Yes (Other)
  Sender: FDA-Public Use
  Company Number: US-SANOFI-AVENTIS-2013SA087970

PATIENT
  Age: 47 Year
  Sex: Male
  Weight: 84.36 kg

DRUGS (33)
  1. LANTUS SOLOSTAR [Suspect]
     Indication: TYPE 1 DIABETES MELLITUS
     Dosage: THERAPY START DATE: 3-4 YEARS
     Route: 058
     Dates: start: 20101215, end: 20130901
  2. LANTUS SOLOSTAR [Suspect]
     Indication: TYPE 1 DIABETES MELLITUS
     Dosage: THERAPY START DATE: 3-4 YEARS
     Route: 058
     Dates: start: 20101215, end: 20130901
  3. LANTUS SOLOSTAR [Suspect]
     Indication: TYPE 1 DIABETES MELLITUS
     Dosage: THERAPY START DATE: 3-4 YEARS
     Route: 058
     Dates: start: 20130902
  4. LANTUS SOLOSTAR [Suspect]
     Indication: TYPE 1 DIABETES MELLITUS
     Dosage: THERAPY START DATE: 3-4 YEARS
     Route: 058
     Dates: start: 20130902
  5. HUMALOG [Suspect]
     Dosage: DOSE:3 UNIT(S)
  6. SOLOSTAR [Concomitant]
     Indication: TYPE 1 DIABETES MELLITUS
     Dates: start: 20101215, end: 20130901
  7. SOLOSTAR [Concomitant]
     Indication: TYPE 1 DIABETES MELLITUS
     Dates: start: 20130902
  8. SYNTHROID [Concomitant]
     Dosage: 300 MCG ON MONDAY, WEDNESDAY, FRIDAY AND SATURDAY.
  9. LIOTHYRONINE [Concomitant]
  10. RITALIN SR [Concomitant]
  11. TESTOSTERONE [Concomitant]
  12. DHEA [Concomitant]
  13. BETAINE [Concomitant]
  14. PANCRELIPASE [Concomitant]
  15. VITAMIN C [Concomitant]
  16. VITAMIN D3 [Concomitant]
  17. COQ10 [Concomitant]
  18. OMEGA-3 [Concomitant]
  19. CALCIUM [Concomitant]
  20. GLUCOSAMINE SULFATE [Concomitant]
  21. CHONDROITIN SULFATE [Concomitant]
  22. ALL OTHER THERAPEUTIC PRODUCTS [Concomitant]
  23. ASPIRIN [Concomitant]
  24. VITAMIN B6 [Concomitant]
  25. VITAMIN B12 [Concomitant]
  26. MULTIVITAMINS [Concomitant]
  27. CHONDROITIN SULFATE [Concomitant]
  28. ALL OTHER THERAPEUTIC PRODUCTS [Concomitant]
  29. CHROMIUM PICOLINATE [Concomitant]
  30. OREGANO/LEVOMENTHOL/PEPPERMINT OIL/BROMHEXINE/FENNEL/ANISE OIL/EUCALYPTUS OIL [Concomitant]
  31. ALUMINIUM GLYCINATE/MAGNESIUM OXIDE [Concomitant]
  32. ALL OTHER THERAPEUTIC PRODUCTS [Concomitant]
  33. ALL OTHER THERAPEUTIC PRODUCTS [Concomitant]

REACTIONS (4)
  - Hypoglycaemia [Unknown]
  - Pancreatic enzyme abnormality [Unknown]
  - Blood glucose decreased [Unknown]
  - Blood glucose increased [Unknown]
